FAERS Safety Report 5277504-5 (Version None)
Quarter: 2007Q1

REPORT INFORMATION
  Report Type: 
  Country: None (occurrence: None)
  Receive Date: 20070327
  Receipt Date: 20070322
  Transmission Date: 20070707
  Serious: Yes (Hospitalization)
  Sender: FDA-Public Use
  Company Number: US-JNJFOC-20061104960

PATIENT
  Age: 14 Year
  Sex: Male
  Weight: 75 kg

DRUGS (2)
  1. IBUPROFEN [Suspect]
  2. IBUPROFEN [Suspect]
     Indication: INTENTIONAL DRUG MISUSE

REACTIONS (10)
  - ACIDOSIS [None]
  - CARDIAC ENZYMES INCREASED [None]
  - COMA [None]
  - GASTROINTESTINAL HAEMORRHAGE [None]
  - HEPATIC ENZYME INCREASED [None]
  - HYPOTENSION [None]
  - INTENTIONAL OVERDOSE [None]
  - PULMONARY HAEMORRHAGE [None]
  - RENAL FAILURE [None]
  - SINUS TACHYCARDIA [None]
